FAERS Safety Report 8131186-3 (Version None)
Quarter: 2012Q1

REPORT INFORMATION
  Report Type: 
  Country: None (occurrence: None)
  Receive Date: 20120209
  Receipt Date: 20120209
  Transmission Date: 20120608
  Serious: Yes (Life-Threatening, Hospitalization, Disabling)
  Sender: FDA-Public Use
  Company Number: None

PATIENT
  Sex: Male
  Weight: 91.6266 kg

DRUGS (2)
  1. AVAPRO [Suspect]
     Indication: HYPERTENSION
     Dosage: 300MG DAILY ORAL
     Route: 048
     Dates: start: 20061014, end: 20090312
  2. NIFEDIPINE [Suspect]
     Indication: HYPERTENSION
     Dosage: 60MG DAY DAILY ORAL
     Route: 048
     Dates: start: 20051201, end: 20090413

REACTIONS (9)
  - SCAB [None]
  - OROPHARYNGEAL PAIN [None]
  - VISUAL IMPAIRMENT [None]
  - HEMIPARESIS [None]
  - SKIN EXFOLIATION [None]
  - PSORIASIS [None]
  - MYALGIA [None]
  - PRURITUS [None]
  - HAEMORRHAGE [None]
